FAERS Safety Report 23685385 (Version 4)
Quarter: 2024Q2

REPORT INFORMATION
  Report Type: Report from Study
  Country: US (occurrence: US)
  Receive Date: 20240329
  Receipt Date: 20240508
  Transmission Date: 20240715
  Serious: No
  Sender: FDA-Public Use
  Company Number: US-ALXN-202403USA001509US

PATIENT
  Age: 67 Year
  Sex: Female
  Weight: 78.912 kg

DRUGS (1)
  1. STRENSIQ [Suspect]
     Active Substance: ASFOTASE ALFA
     Indication: Product used for unknown indication
     Dosage: UNK UNK, TIW
     Route: 065
     Dates: start: 20230828

REACTIONS (4)
  - Neuralgia [Not Recovered/Not Resolved]
  - Injection site pain [Recovered/Resolved]
  - Musculoskeletal stiffness [Recovered/Resolved]
  - Extraskeletal ossification [Unknown]

NARRATIVE: CASE EVENT DATE: 20240301
